FAERS Safety Report 7659411-3 (Version None)
Quarter: 2011Q3

REPORT INFORMATION
  Report Type: 
  Country: None (occurrence: None)
  Receive Date: 20110805
  Receipt Date: 20110725
  Transmission Date: 20111222
  Serious: Yes (Hospitalization)
  Sender: FDA-Public Use
  Company Number: FR-PFIZER INC-2011169491

PATIENT
  Age: 50 Year
  Sex: Female

DRUGS (3)
  1. GEMTUZUMAB OZOGAMICIN [Suspect]
     Indication: ACUTE MYELOID LEUKAEMIA
     Dosage: 10.6 MG, 1X/DAY
     Route: 042
     Dates: start: 20080828, end: 20080828
  2. DAUNORUBICIN HYDROCHLORIDE [Suspect]
     Indication: ACUTE MYELOID LEUKAEMIA
     Dosage: 106 MG, 1X/DAY
     Route: 042
     Dates: start: 20080825, end: 20080827
  3. CYTARABINE [Suspect]
     Indication: ACUTE MYELOID LEUKAEMIA
     Dosage: 350 MG, 1X/DAY
     Route: 042
     Dates: start: 20080825, end: 20080831

REACTIONS (1)
  - BRONCHOPULMONARY ASPERGILLOSIS [None]
